FAERS Safety Report 5400631-6 (Version None)
Quarter: 2007Q3

REPORT INFORMATION
  Report Type: 
  Country: None (occurrence: None)
  Receive Date: 20070730
  Receipt Date: 20070725
  Transmission Date: 20080115
  Serious: Yes (Death, Hospitalization, Other)
  Sender: FDA-Public Use
  Company Number: US-BRISTOL-MYERS SQUIBB COMPANY-13853478

PATIENT
  Age: 29 Year
  Sex: Female
  Weight: 48 kg

DRUGS (4)
  1. DASATINIB [Suspect]
     Indication: SARCOMA
     Route: 048
     Dates: start: 20070713, end: 20070717
  2. OXYCODONE HCL + ACETAMINOPHEN [Concomitant]
     Dosage: 5MG/325MG (325 MG ACETAMINOPHEN) 1-2 TABS PER 4HRS AS NEEDED. DO NOT KNOW EXACT DOSE
     Dates: start: 20070713
  3. LORAZEPAM [Concomitant]
     Route: 048
     Dates: start: 20070713
  4. PHENERGAN HCL [Concomitant]
     Dosage: 1/2-1 TABS TID WITH TOTAL DAILY DOSE 37.5 MG
     Dates: start: 20070713

REACTIONS (2)
  - BACK PAIN [None]
  - VENTRICULAR TACHYCARDIA [None]
